FAERS Safety Report 8789198 (Version 1)
Quarter: 2012Q4

REPORT INFORMATION
  Report Type: Spontaneous
  Country: US (occurrence: None)
  Receive Date: 20120910
  Receipt Date: 20120910
  Transmission Date: 20130627
  Serious: Yes (Hospitalization)
  Sender: FDA-Public Use
  Company Number: None

PATIENT
  Age: 52 Year
  Sex: Male
  Weight: 60.5 kg

DRUGS (2)
  1. RIFAPENTINE [Suspect]
     Indication: LATENT TUBERCULOSIS
     Route: 048
     Dates: start: 20120727
  2. ISONIAZID [Suspect]
     Route: 048

REACTIONS (2)
  - Contraindication to medical treatment [None]
  - Liver function test abnormal [None]
